FAERS Safety Report 10549485 (Version 2)
Quarter: 2015Q1

REPORT INFORMATION
  Report Type: Spontaneous
  Country: US (occurrence: None)
  Receive Date: 20141020
  Receipt Date: 20150120
  Transmission Date: 20150720
  Serious: No
  Sender: FDA-Public Use
  Company Number: AEGR000743

PATIENT
  Age: 50 Year
  Sex: Female
  Weight: 112 kg

DRUGS (5)
  1. WELCHOL (COLESEVELAM HYDROCHLORIDE) [Concomitant]
  2. ZETIA [Concomitant]
     Active Substance: EZETIMIBE
  3. JUXTAPID [Suspect]
     Active Substance: LOMITAPIDE MESYLATE
     Indication: TYPE IIA HYPERLIPIDAEMIA
     Route: 048
     Dates: start: 20140909
  4. CRESTOR [Concomitant]
     Active Substance: ROSUVASTATIN CALCIUM
  5. NIACIN (NICOTINIC ACID) [Concomitant]

REACTIONS (4)
  - Viral infection [None]
  - Gastrointestinal disorder [None]
  - Diarrhoea [None]
  - Sinus disorder [None]

NARRATIVE: CASE EVENT DATE: 2014
